FAERS Safety Report 11914141 (Version 1)
Quarter: 2016Q1

REPORT INFORMATION
  Report Type: Spontaneous
  Country: US (occurrence: US)
  Receive Date: 20160113
  Receipt Date: 20160113
  Transmission Date: 20160526
  Serious: No
  Sender: FDA-Public Use
  Company Number: US-ELI_LILLY_AND_COMPANY-US201512005306

PATIENT
  Age: 71 Year
  Sex: Male

DRUGS (6)
  1. GLIMEPIRIDE. [Concomitant]
     Active Substance: GLIMEPIRIDE
  2. METFORMIN [Concomitant]
     Active Substance: METFORMIN HYDROCHLORIDE
  3. HUMALOG [Suspect]
     Active Substance: INSULIN LISPRO
     Indication: TYPE 2 DIABETES MELLITUS
     Dosage: 1.7 U, OTHER
     Route: 058
     Dates: start: 2013, end: 20151207
  4. HUMALOG [Suspect]
     Active Substance: INSULIN LISPRO
     Dosage: 1.7 U, OTHER
     Route: 058
     Dates: start: 20151207, end: 20151213
  5. HUMALOG [Suspect]
     Active Substance: INSULIN LISPRO
     Dosage: 1.7 U, OTHER
     Route: 058
     Dates: start: 20151213
  6. HUMALOG [Suspect]
     Active Substance: INSULIN LISPRO
     Dosage: 30 U, SINGLE
     Route: 058
     Dates: start: 20151214

REACTIONS (3)
  - Blood glucose increased [Not Recovered/Not Resolved]
  - Drug ineffective [Unknown]
  - Incorrect product storage [Unknown]

NARRATIVE: CASE EVENT DATE: 20151207
